FAERS Safety Report 10243050 (Version 1)
Quarter: 2014Q2

REPORT INFORMATION
  Report Type: Spontaneous
  Country: US (occurrence: US)
  Receive Date: 20140618
  Receipt Date: 20140618
  Transmission Date: 20141212
  Serious: Yes (Other)
  Sender: FDA-Public Use
  Company Number: US-SHIRE-US201403035

PATIENT
  Sex: Male
  Weight: 122.45 kg

DRUGS (2)
  1. VYVANSE [Suspect]
     Indication: ATTENTION DEFICIT/HYPERACTIVITY DISORDER
     Dosage: 70 MG, 1X/DAY:QD
     Route: 048
     Dates: start: 201112, end: 201202
  2. WELLBUTRIN [Concomitant]
     Indication: PRODUCT USED FOR UNKNOWN INDICATION
     Dosage: 150 MG, 1X/DAY:QD
     Route: 048
     Dates: start: 201003

REACTIONS (2)
  - Schizophrenia, paranoid type [Not Recovered/Not Resolved]
  - Anxiety [Not Recovered/Not Resolved]
